FAERS Safety Report 8375619-6 (Version None)
Quarter: 2012Q1

REPORT INFORMATION
  Report Type: 
  Country: None (occurrence: None)
  Receive Date: 20120323
  Receipt Date: 20110201
  Transmission Date: 20120608
  Serious: Yes (Hospitalization, Other)
  Sender: FDA-Public Use
  Company Number: 163-21880-11020286

PATIENT
  Age: 57 Year
  Sex: Female
  Weight: 81.8 kg

DRUGS (8)
  1. REVLIMID [Suspect]
     Indication: MULTIPLE MYELOMA
     Dosage: 25 MG, QD FOR 21 DAYS, PO
     Route: 048
     Dates: start: 20100901, end: 20110119
  2. ATENOLOL [Concomitant]
  3. ACYCLOVIR [Concomitant]
  4. ASPIRIN [Concomitant]
  5. ATIVAN [Concomitant]
  6. CYTOXAN [Concomitant]
  7. OXYCODONE HCL [Concomitant]
  8. PRILOSEC [Concomitant]

REACTIONS (7)
  - URINARY TRACT INFECTION [None]
  - NEUTROPENIA [None]
  - RESPIRATORY TRACT INFECTION [None]
  - THROMBOCYTOPENIA [None]
  - SINUSITIS [None]
  - HYPOTENSION [None]
  - DEHYDRATION [None]
